FAERS Safety Report 19935821 (Version 1)
Quarter: 2021Q4

REPORT INFORMATION
  Report Type: Spontaneous
  Country: CA (occurrence: CA)
  Receive Date: 20211008
  Receipt Date: 20211008
  Transmission Date: 20220303
  Serious: Yes (Hospitalization)
  Sender: FDA-Public Use
  Company Number: CA-TEVA-2021-CA-1961714

PATIENT
  Sex: Female

DRUGS (13)
  1. CAPECITABINE [Suspect]
     Active Substance: CAPECITABINE
     Route: 065
  2. AMOXICILLIN\CLAVULANATE POTASSIUM [Concomitant]
     Active Substance: AMOXICILLIN\CLAVULANATE POTASSIUM
  3. COD LIVER OIL [Concomitant]
     Active Substance: COD LIVER OIL
  4. ESCITALOPRAM [Concomitant]
     Active Substance: ESCITALOPRAM OXALATE
  5. FLUCONAZOLE [Concomitant]
     Active Substance: FLUCONAZOLE
  6. ASIAN GINSENG [Concomitant]
     Active Substance: ASIAN GINSENG
  7. MELATONIN [Concomitant]
     Active Substance: MELATONIN
  8. MINERALS\VITAMINS [Concomitant]
     Active Substance: MINERALS\VITAMINS
  9. OMEGA - 3 [Concomitant]
  10. PROCHLORPERAZINE [Concomitant]
     Active Substance: PROCHLORPERAZINE
  11. QUETIAPINE [Concomitant]
     Active Substance: QUETIAPINE
  12. VITAMIN B12 [Concomitant]
     Active Substance: CYANOCOBALAMIN
  13. VITAMIN D3 [Concomitant]
     Active Substance: CHOLECALCIFEROL

REACTIONS (15)
  - Chest pain [Unknown]
  - Dizziness postural [Unknown]
  - Dysphagia [Unknown]
  - Ear pain [Unknown]
  - Lethargy [Unknown]
  - Nausea [Unknown]
  - Neutropenia [Unknown]
  - Oral mucosal blistering [Unknown]
  - Oropharyngeal pain [Unknown]
  - Productive cough [Unknown]
  - Rash macular [Unknown]
  - Somnolence [Unknown]
  - Tachycardia [Unknown]
  - Vomiting [Unknown]
  - Yellow skin [Unknown]
